FAERS Safety Report 8594112-9 (Version None)
Quarter: 2012Q3

REPORT INFORMATION
  Report Type: 
  Country: None (occurrence: None)
  Receive Date: 20120814
  Receipt Date: 20120802
  Transmission Date: 20120928
  Serious: Yes (Hospitalization, Other)
  Sender: FDA-Public Use
  Company Number: US-009507513-1201USA02270

PATIENT

DRUGS (9)
  1. FOSAMAX [Suspect]
     Dosage: 70 MG, ORAL
     Route: 048
     Dates: start: 20081001, end: 20100401
  2. PREMARIN [Concomitant]
     Route: 061
  3. FOSAMAX [Suspect]
     Indication: OSTEOPOROSIS
     Dosage: 10 MG, ORAL
     Route: 048
     Dates: start: 19980301, end: 20010301
  4. VIVELLE [Concomitant]
     Indication: MENOPAUSE
     Dosage: UNK
     Route: 062
     Dates: start: 20020322
  5. FOSAMAX [Suspect]
     Dosage: 70 MG, ORAL
     Route: 048
     Dates: start: 20010401, end: 20080901
  6. ESCLIM [Concomitant]
     Indication: MENOPAUSE
  7. ALENDRONATE SODIUM [Suspect]
     Dosage: 70 MG, UNK
     Dates: start: 20090313
  8. PREMARIN [Concomitant]
     Indication: MENOPAUSE
     Route: 062
  9. CLIMARA [Concomitant]
     Indication: MENOPAUSE
     Dosage: 0.06 MG, UNK
     Route: 063
     Dates: end: 20020322

REACTIONS (57)
  - HYPERCHOLESTEROLAEMIA [None]
  - HIATUS HERNIA [None]
  - NOCTURIA [None]
  - GASTROOESOPHAGEAL REFLUX DISEASE [None]
  - BACK PAIN [None]
  - OFF LABEL USE [None]
  - FEMUR FRACTURE [None]
  - SOMNOLENCE [None]
  - PAPILLOMA [None]
  - VITAMIN D DEFICIENCY [None]
  - IRRITABLE BOWEL SYNDROME [None]
  - GLAUCOMA [None]
  - PAPILLOMA VIRAL INFECTION [None]
  - IMPAIRED HEALING [None]
  - OSTEOPENIA [None]
  - INTERVERTEBRAL DISC DEGENERATION [None]
  - STRESS URINARY INCONTINENCE [None]
  - VAGINAL DYSPLASIA [None]
  - INTERVERTEBRAL DISC PROTRUSION [None]
  - GASTROINTESTINAL HAEMORRHAGE [None]
  - FRACTURE NONUNION [None]
  - LUNG NEOPLASM [None]
  - COITAL BLEEDING [None]
  - ANXIETY [None]
  - COLONIC POLYP [None]
  - DIVERTICULUM [None]
  - SEBORRHOEIC KERATOSIS [None]
  - DYSGEUSIA [None]
  - DRUG INEFFECTIVE [None]
  - LOW TURNOVER OSTEOPATHY [None]
  - DEPRESSION [None]
  - CALCIUM DEFICIENCY [None]
  - DYSPAREUNIA [None]
  - PARAESTHESIA [None]
  - LUMBAR SPINAL STENOSIS [None]
  - SALPINGO-OOPHORECTOMY BILATERAL [None]
  - VAGINAL HAEMORRHAGE [None]
  - TOXOPLASMOSIS [None]
  - GASTROINTESTINAL DISORDER [None]
  - BREAST TENDERNESS [None]
  - URETHRAL INTRINSIC SPHINCTER DEFICIENCY [None]
  - VITAMIN B12 DEFICIENCY [None]
  - HERPES ZOSTER [None]
  - PYREXIA [None]
  - ADVERSE EVENT [None]
  - HYPERTRIGLYCERIDAEMIA [None]
  - OSTEOARTHRITIS [None]
  - MIXED INCONTINENCE [None]
  - RENAL COLIC [None]
  - PAIN [None]
  - ADJUSTMENT DISORDER [None]
  - BREAST CYST [None]
  - FATIGUE [None]
  - SMEAR CERVIX ABNORMAL [None]
  - CONTUSION [None]
  - RADICULITIS LUMBOSACRAL [None]
  - BRADYPHRENIA [None]
